FAERS Safety Report 14560215 (Version 1)
Quarter: 2018Q1

REPORT INFORMATION
  Report Type: Spontaneous
  Country: IE (occurrence: IE)
  Receive Date: 20180222
  Receipt Date: 20180222
  Transmission Date: 20180509
  Serious: Yes (Life-Threatening, Hospitalization, Other)
  Sender: FDA-Public Use
  Company Number: IE-BAXTER-2018BAX005195

PATIENT
  Age: 49 Year
  Sex: Male

DRUGS (19)
  1. UROMITEXAN INJECTION 100MG/ML SOLUTION FOR INJECTION OR INFUSION [Suspect]
     Active Substance: MESNA
     Dosage: D2 3HRS, 6HRS, 9HRS POST IFOSFAMINDE
     Route: 042
  2. MITOXANA 2G POWDER FOR STERILE CONCENTRATE [Suspect]
     Active Substance: IFOSFAMIDE
     Route: 065
  3. ADCETRIS [Suspect]
     Active Substance: BRENTUXIMAB VEDOTIN
     Indication: NON-HODGKIN^S LYMPHOMA RECURRENT
     Dosage: D1 ONLY
     Route: 042
     Dates: start: 20171103, end: 20171103
  4. NEPRAMEL [Concomitant]
     Indication: PROPHYLAXIS AGAINST GASTROINTESTINAL ULCER
     Route: 048
  5. MYCOSTATIN [Concomitant]
     Active Substance: NYSTATIN
     Indication: PROPHYLAXIS
     Route: 065
  6. MITOXANA 2G POWDER FOR STERILE CONCENTRATE [Suspect]
     Active Substance: IFOSFAMIDE
     Indication: NON-HODGKIN^S LYMPHOMA RECURRENT
     Dosage: D2
     Route: 042
  7. ETOPOSIDE. [Suspect]
     Active Substance: ETOPOSIDE
     Dosage: D1 TO D3
     Route: 042
     Dates: start: 20171103, end: 20171105
  8. LYRICA [Concomitant]
     Active Substance: PREGABALIN
     Indication: BACK PAIN
     Route: 048
  9. ALLOPURINOL. [Concomitant]
     Active Substance: ALLOPURINOL
     Indication: PROPHYLAXIS
     Route: 048
  10. CARBOPLATIN. [Suspect]
     Active Substance: CARBOPLATIN
     Indication: NON-HODGKIN^S LYMPHOMA RECURRENT
     Dosage: D2
     Route: 042
  11. MACUSHIELD [Concomitant]
     Active Substance: DIETARY SUPPLEMENT
     Indication: MACULAR DEGENERATION
     Route: 065
  12. ETOPOSIDE. [Suspect]
     Active Substance: ETOPOSIDE
     Indication: NON-HODGKIN^S LYMPHOMA RECURRENT
     Route: 042
  13. VALTREX [Concomitant]
     Active Substance: VALACYCLOVIR HYDROCHLORIDE
     Indication: PROPHYLAXIS
     Route: 048
  14. METOCLOPRAMIDE. [Concomitant]
     Active Substance: METOCLOPRAMIDE
     Indication: PRODUCT USED FOR UNKNOWN INDICATION
     Route: 065
  15. LASIX [Concomitant]
     Active Substance: FUROSEMIDE
     Indication: FLUID RETENTION
     Dosage: 20-40MG
     Route: 065
  16. UROMITEXAN INJECTION 100MG/ML SOLUTION FOR INJECTION OR INFUSION [Suspect]
     Active Substance: MESNA
     Indication: NON-HODGKIN^S LYMPHOMA RECURRENT
     Dosage: D3: 3HRS,6HRS,9HRS POST IFOSFAMIDE
     Route: 042
  17. MITOXANA 2G POWDER FOR STERILE CONCENTRATE [Suspect]
     Active Substance: IFOSFAMIDE
     Route: 065
  18. CARBOPLATIN. [Suspect]
     Active Substance: CARBOPLATIN
     Route: 042
  19. CYCLIZINE [Concomitant]
     Active Substance: CYCLIZINE
     Indication: PROPHYLAXIS
     Dosage: TDS
     Route: 065

REACTIONS (3)
  - Acute hepatic failure [Recovering/Resolving]
  - Blood pressure decreased [Unknown]
  - Renal failure [Recovering/Resolving]

NARRATIVE: CASE EVENT DATE: 201711
